FAERS Safety Report 4798105-9 (Version None)
Quarter: 2005Q4

REPORT INFORMATION
  Report Type: 
  Country: None (occurrence: None)
  Receive Date: 20051012
  Receipt Date: 20051012
  Transmission Date: 20060501
  Serious: Yes (Hospitalization)
  Sender: FDA-Public Use
  Company Number: None

PATIENT
  Sex: Male
  Weight: 74.8435 kg

DRUGS (7)
  1. LOTENSIN [Suspect]
     Indication: HYPERTENSION
     Dosage: 20 MG PO QD [PRIOR TO ADMISSION]
     Route: 048
  2. PRAVACHOL [Concomitant]
  3. HYTRIN [Concomitant]
  4. EFFEXOR XR [Concomitant]
  5. VERAPAMIL [Concomitant]
  6. ARICEPT [Concomitant]
  7. PLAVIX [Concomitant]

REACTIONS (3)
  - ATRIAL FIBRILLATION [None]
  - BLOOD POTASSIUM INCREASED [None]
  - RENAL FAILURE ACUTE [None]
